FAERS Safety Report 9837878 (Version 1)
Quarter: 2014Q1

REPORT INFORMATION
  Report Type: Spontaneous
  Country: BE (occurrence: BE)
  Receive Date: 20140123
  Receipt Date: 20140123
  Transmission Date: 20141002
  Serious: Yes (Hospitalization)
  Sender: FDA-Public Use
  Company Number: BE-JNJFOC-20140107788

PATIENT
  Age: 42 Year
  Sex: Male

DRUGS (1)
  1. INFLIXIMAB, RECOMBINANT [Suspect]
     Indication: COLITIS ULCERATIVE
     Route: 042
     Dates: start: 2012

REACTIONS (4)
  - Legionella infection [Recovering/Resolving]
  - Abscess [Recovering/Resolving]
  - Pleural effusion [Recovering/Resolving]
  - Hypoxia [Recovering/Resolving]
